FAERS Safety Report 16560520 (Version 2)
Quarter: 2019Q3

REPORT INFORMATION
  Report Type: Spontaneous
  Country: JP (occurrence: JP)
  Receive Date: 20190711
  Receipt Date: 20190726
  Transmission Date: 20191004
  Serious: Yes (Hospitalization)
  Sender: FDA-Public Use
  Company Number: JP-TOLMAR, INC.-2019JP007115

PATIENT

DRUGS (3)
  1. GOSERELIN [Suspect]
     Active Substance: GOSERELIN
     Indication: PROSTATE CANCER
     Dosage: 3.6 MG, UNK
     Route: 058
  2. BICALUTAMIDE. [Concomitant]
     Active Substance: BICALUTAMIDE
     Indication: PROSTATE CANCER
     Dosage: 80 MG, DAILY
     Route: 065
  3. ELIGARD [Suspect]
     Active Substance: LEUPROLIDE ACETATE
     Indication: PROSTATE CANCER
     Dosage: 22.5 MG, UNK
     Route: 065

REACTIONS (1)
  - Pituitary tumour benign [Recovered/Resolved]

NARRATIVE: CASE EVENT DATE: 2016
